FAERS Safety Report 13916285 (Version 1)
Quarter: 2017Q3

REPORT INFORMATION
  Report Type: Spontaneous
  Country: DE (occurrence: DE)
  Receive Date: 20170829
  Receipt Date: 20170829
  Transmission Date: 20171127
  Serious: Yes (Hospitalization, Other)
  Sender: FDA-Public Use
  Company Number: DE-DRREDDYS-GER/GER/17/0092864

PATIENT
  Age: 33 Year
  Sex: Female
  Weight: 86 kg

DRUGS (4)
  1. FOLIO FORTE [Concomitant]
     Active Substance: FOLIC ACID\VITAMINS
     Indication: PROPHYLAXIS OF NEURAL TUBE DEFECT
     Route: 048
     Dates: start: 20160608, end: 20161124
  2. CELESTAN [Concomitant]
     Active Substance: BETAMETHASONE
     Indication: MATERNAL THERAPY TO ENHANCE FOETAL LUNG MATURITY
     Route: 030
     Dates: start: 20161123, end: 20161124
  3. LEVETIRACETAM. [Suspect]
     Active Substance: LEVETIRACETAM
     Indication: EPILEPSY
     Dosage: IN THE MORNING
     Route: 048
     Dates: start: 20160503, end: 20161124
  4. LEVETIRACETAM. [Suspect]
     Active Substance: LEVETIRACETAM
     Dosage: IN THE EVENING
     Route: 048
     Dates: start: 20160503, end: 20161124

REACTIONS (4)
  - Vascular resistance systemic increased [Unknown]
  - Pre-eclampsia [Unknown]
  - Placental insufficiency [Unknown]
  - Exposure during pregnancy [Unknown]
